FAERS Safety Report 6860849-2 (Version None)
Quarter: 2010Q3

REPORT INFORMATION
  Report Type: 
  Country: None (occurrence: None)
  Receive Date: 20100719
  Receipt Date: 20100719
  Transmission Date: 20110219
  Serious: Yes (Hospitalization)
  Sender: FDA-Public Use
  Company Number: None

PATIENT
  Age: 60 Year
  Sex: Female
  Weight: 48.5349 kg

DRUGS (1)
  1. ALENDRONATE SODIUM [Suspect]
     Indication: OSTEOPENIA
     Dosage: 1 TABLET WEEKLY PO
     Route: 047
     Dates: start: 20031226, end: 20100616

REACTIONS (3)
  - FEMUR FRACTURE [None]
  - PATHOLOGICAL FRACTURE [None]
  - PRODUCT SUBSTITUTION ISSUE [None]
